FAERS Safety Report 9346345 (Version 1)
Quarter: 2013Q2

REPORT INFORMATION
  Report Type: Spontaneous
  Country: CA (occurrence: CA)
  Receive Date: 20130613
  Receipt Date: 20130613
  Transmission Date: 20140414
  Serious: Yes (Death)
  Sender: FDA-Public Use
  Company Number: CA-AMGEN-CANSP2013041544

PATIENT
  Age: 91 Year
  Sex: Female
  Weight: 59 kg

DRUGS (11)
  1. PROLIA [Suspect]
     Indication: PRODUCT USED FOR UNKNOWN INDICATION
     Dosage: 60 MG, Q6MO
     Route: 058
  2. CALCIUM AND VIT D [Concomitant]
  3. DOMPERIDONE [Concomitant]
  4. EBIXA [Concomitant]
  5. LACTULOSE [Concomitant]
  6. LASIX                              /00032601/ [Concomitant]
  7. MAALOX                             /00082501/ [Concomitant]
  8. PREVACID [Concomitant]
  9. SENOKOT                            /00142201/ [Concomitant]
  10. SYNTHROID [Concomitant]
  11. TYLENOL                            /00020001/ [Concomitant]

REACTIONS (5)
  - Blood potassium decreased [Fatal]
  - Blood sodium decreased [Fatal]
  - Lung infection [Fatal]
  - Renal failure acute [Fatal]
  - Urinary tract infection [Fatal]
